FAERS Safety Report 24862950 (Version 1)
Quarter: 2025Q1

REPORT INFORMATION
  Report Type: Spontaneous
  Country: US (occurrence: US)
  Receive Date: 20250120
  Receipt Date: 20250120
  Transmission Date: 20250409
  Serious: No
  Sender: SANDOZ
  Company Number: US-SANDOZ-SDZ2025US003305

PATIENT
  Age: 14 Year
  Sex: Male
  Weight: 35.374 kg

DRUGS (1)
  1. OMNITROPE [Suspect]
     Active Substance: SOMATROPIN
     Indication: Hypopituitarism
     Dosage: 1.4 MG, QD
     Route: 058
     Dates: start: 20240620

REACTIONS (2)
  - Cough [Recovering/Resolving]
  - Catarrh [Recovering/Resolving]

NARRATIVE: CASE EVENT DATE: 20250105
